FAERS Safety Report 8851086 (Version 1)
Quarter: 2012Q4

REPORT INFORMATION
  Report Type: 
  Country: US (occurrence: US)
  Receive Date: 20121019
  Receipt Date: 20121019
  Transmission Date: 20130627
  Serious: Yes (Other)
  Sender: FDA-Public Use
  Company Number: US-TEVA-364702USA

PATIENT
  Age: 25 Year
  Sex: Female

DRUGS (1)
  1. COPAXONE [Suspect]
     Indication: MULTIPLE SCLEROSIS
     Dates: start: 20120907

REACTIONS (3)
  - Loss of consciousness [Recovered/Resolved]
  - Immediate post-injection reaction [Recovered/Resolved]
  - Chest discomfort [Recovered/Resolved]
